FAERS Safety Report 6085184-4 (Version None)
Quarter: 2009Q1

REPORT INFORMATION
  Report Type: 
  Country: None (occurrence: None)
  Receive Date: 20090218
  Receipt Date: 20090216
  Transmission Date: 20090719
  Serious: Yes (Death, Hospitalization)
  Sender: FDA-Public Use
  Company Number: 2009SP003497

PATIENT
  Age: 39 Year
  Sex: Male

DRUGS (5)
  1. PEG-INTRON [Suspect]
     Indication: HEPATITIS C
     Dosage: 120 MCG;QW;SC
     Route: 058
     Dates: start: 20080828, end: 20090206
  2. RIBAVIRIN [Suspect]
     Indication: HEPATITIS C
     Dosage: 800 MG;QD;PO
     Route: 048
     Dates: start: 20080828, end: 20090206
  3. ELTROMBOPAG (ELTROMBOPAG) [Suspect]
     Indication: THROMBOCYTOPENIA
     Dosage: ;QD;PO, 75 MG;QD;PO
     Route: 048
     Dates: start: 20080716, end: 20080813
  4. ELTROMBOPAG (ELTROMBOPAG) [Suspect]
     Indication: THROMBOCYTOPENIA
     Dosage: ;QD;PO, 75 MG;QD;PO
     Route: 048
     Dates: start: 20080813, end: 20080828
  5. BLINDED ELTROMBOPAG (ELTROMBOPAG) [Suspect]
     Indication: THROMBOCYTOPENIA
     Dosage: 100 MG;QD;PO
     Route: 048
     Dates: start: 20080828, end: 20090206

REACTIONS (8)
  - BLOOD GLUCOSE INCREASED [None]
  - HAEMOGLOBIN DECREASED [None]
  - HEPATIC ENCEPHALOPATHY [None]
  - HYPOGLYCAEMIA [None]
  - INTERNATIONAL NORMALISED RATIO INCREASED [None]
  - NEUTROPHIL COUNT DECREASED [None]
  - SEPSIS [None]
  - SHOCK [None]
